FAERS Safety Report 4492127-3 (Version None)
Quarter: 2004Q3

REPORT INFORMATION
  Report Type: 
  Country: None (occurrence: None)
  Receive Date: 20040924
  Receipt Date: 20040115
  Transmission Date: 20050211
  Serious: Yes (Hospitalization)
  Sender: FDA-Public Use
  Company Number: 04P-131-0247633-00

PATIENT
  Age: 39 Year
  Sex: Female
  Weight: 58.0604 kg

DRUGS (5)
  1. KALETRA [Suspect]
     Indication: HIV INFECTION
     Dosage: PER ORAL
     Route: 048
     Dates: start: 20031027
  2. ZIDOVUDINE W/LAMIVUDINE [Concomitant]
  3. FERROUS SULFATE TAB [Concomitant]
  4. VITACEL [Concomitant]
  5. BETAMETHASONE DIPROPIONATE [Concomitant]

REACTIONS (1)
  - ASTHMA [None]
